FAERS Safety Report 5705582-5 (Version None)
Quarter: 2008Q2

REPORT INFORMATION
  Report Type: 
  Country: None (occurrence: None)
  Receive Date: 20080415
  Receipt Date: 20080407
  Transmission Date: 20081010
  Serious: Yes (Hospitalization)
  Sender: FDA-Public Use
  Company Number: DE-WYE-G01295408

PATIENT
  Sex: Female
  Weight: 60 kg

DRUGS (6)
  1. TREVILOR RETARD [Suspect]
     Indication: DEPRESSION
     Route: 048
     Dates: end: 20060101
  2. TREVILOR RETARD [Suspect]
     Route: 048
     Dates: start: 20060101, end: 20060101
  3. TREVILOR RETARD [Suspect]
     Route: 048
     Dates: start: 20060101, end: 20080101
  4. TREVILOR RETARD [Suspect]
     Route: 048
     Dates: start: 20080101
  5. TREVILOR RETARD [Suspect]
     Route: 048
     Dates: start: 20080101, end: 20080101
  6. TREVILOR RETARD [Suspect]
     Route: 048
     Dates: start: 20080101

REACTIONS (7)
  - CARDIOVASCULAR DISORDER [None]
  - DIARRHOEA [None]
  - DIZZINESS [None]
  - DRUG WITHDRAWAL SYNDROME [None]
  - HEADACHE [None]
  - HYPERHIDROSIS [None]
  - NAUSEA [None]
